FAERS Safety Report 25611834 (Version 2)
Quarter: 2025Q3

REPORT INFORMATION
  Report Type: Report from Study
  Country: US (occurrence: US)
  Receive Date: 20250728
  Receipt Date: 20250922
  Transmission Date: 20251020
  Serious: Yes (Other)
  Sender: JAZZ
  Company Number: US-JAZZ PHARMACEUTICALS-2025-US-018299

PATIENT
  Age: 32 Year
  Sex: Female
  Weight: 125 kg

DRUGS (1)
  1. EPIDIOLEX [Suspect]
     Active Substance: CANNABIDIOL
     Indication: Lennox-Gastaut syndrome
     Dosage: 3 MILLILITER, BID, (10.58 MILLIGRAM PER KILOGRAM PER DAY TWICE DAILY)
     Dates: start: 20250417

REACTIONS (4)
  - Suicidal ideation [Unknown]
  - Burns third degree [Unknown]
  - Seizure [Unknown]
  - Anxiety [Unknown]

NARRATIVE: CASE EVENT DATE: 20250701
